FAERS Safety Report 8896484 (Version 1)
Quarter: 2012Q4

REPORT INFORMATION
  Report Type: Spontaneous
  Country: TR (occurrence: None)
  Receive Date: 20121102
  Receipt Date: 20121102
  Transmission Date: 20130627
  Serious: Yes (Other)
  Sender: FDA-Public Use
  Company Number: FK201203217

PATIENT
  Age: 34 Year
  Sex: Male

DRUGS (1)
  1. HALOPERIDOL [Suspect]
     Dosage: 5 mg , 1 in 24 hr, Unknown 10 mg, self increased dosing prn, Unknown

REACTIONS (2)
  - Potentiating drug interaction [None]
  - Dystonia [None]
